FAERS Safety Report 6074496-6 (Version None)
Quarter: 2009Q1

REPORT INFORMATION
  Report Type: 
  Country: None (occurrence: None)
  Receive Date: 20090206
  Receipt Date: 20090130
  Transmission Date: 20090719
  Serious: Yes (Hospitalization)
  Sender: FDA-Public Use
  Company Number: 2008SP025557

PATIENT
  Age: 4 Year
  Sex: Male
  Weight: 20 kg

DRUGS (41)
  1. POSACONAZOLE [Suspect]
     Indication: PROPHYLAXIS
     Dosage: 120 MG; BID; PO
     Route: 048
     Dates: start: 20081124, end: 20081205
  2. METHOTREXATE [Suspect]
     Indication: ACUTE LYMPHOCYTIC LEUKAEMIA
     Dosage: 3900 MG; QD; IV
     Route: 042
     Dates: start: 20081219, end: 20081219
  3. VINDESINE (VINDESINE) [Suspect]
     Indication: LEUKAEMIA
     Dosage: 2.3 MG; QD; IV
     Route: 042
     Dates: start: 20081219, end: 20081219
  4. IFOSFAMIDE [Suspect]
     Indication: LEUKAEMIA
     Dosage: 620 MG; BID; IV, 620 MG; QD; IV
     Route: 042
     Dates: start: 20081220, end: 20081221
  5. IFOSFAMIDE [Suspect]
     Indication: LEUKAEMIA
     Dosage: 620 MG; BID; IV, 620 MG; QD; IV
     Route: 042
     Dates: start: 20081222, end: 20081222
  6. GRANISETRON HCL [Suspect]
     Indication: PROPHYLAXIS
     Dosage: 1 MG; IV
     Route: 042
     Dates: start: 20081219
  7. DEXAMETHASONE TAB [Suspect]
     Indication: LEUKAEMIA
     Dosage: 5 MG; TID; PO
     Route: 048
     Dates: start: 20081219, end: 20081223
  8. FLUCONAZOL (CON.) [Concomitant]
  9. COTRIM (CON.) [Concomitant]
  10. TAZOBAC (CON.) [Concomitant]
  11. PLATELET TRANSFUSION (CON.) [Concomitant]
  12. GRANOCYTE (CON.) [Concomitant]
  13. CYCLOPHOSPHAMID (CON.) [Concomitant]
  14. UROMITEXAN (CON.) [Concomitant]
  15. NACL 0.9% (CON.) [Concomitant]
  16. GLUCOSE 5% (CON.) [Concomitant]
  17. KCL (CON.) [Concomitant]
  18. VINCRISTIN (CON.) [Concomitant]
  19. ASPARAGINASE (CON.) [Concomitant]
  20. SODIUM BICARBONATE (CON.) [Concomitant]
  21. LEUKOVORIN (CON.) [Concomitant]
  22. ISOPTODEX (CON.) [Concomitant]
  23. BENADON (CON.) [Concomitant]
  24. VOMEX (CON.) [Concomitant]
  25. LEICICARBON (CON.) [Concomitant]
  26. NACL 0.9% /GLUCOSE 5% (CON.) [Concomitant]
  27. KYBERNIN (CON.) [Concomitant]
  28. PURINETHOL (PREV.) [Concomitant]
  29. PREDNISON (CON.) [Concomitant]
  30. ARA-C (CON.) [Concomitant]
  31. LEUKOVORIN (CON.) [Concomitant]
  32. AMPHO MORONAL (CON.) [Concomitant]
  33. UROMITEXAN (CON.) [Concomitant]
  34. RED BLOOD CELL TRANSFUSION (CON.) [Concomitant]
  35. METHOTREXATE (CON.) [Concomitant]
  36. GRANISETRON (CON.) [Concomitant]
  37. LENOGRASTIM (CON.) [Concomitant]
  38. VITAMIN B6 (CON.) [Concomitant]
  39. NATRIUM HYDROGENCARBONATE (CON.) [Concomitant]
  40. DAUNORUBICIN (CON.) [Concomitant]
  41. FOLINSAURE (VITAMINE B9) (CON.) [Concomitant]

REACTIONS (9)
  - ALANINE AMINOTRANSFERASE INCREASED [None]
  - ASPARTATE AMINOTRANSFERASE INCREASED [None]
  - DRUG LEVEL INCREASED [None]
  - GAMMA-GLUTAMYLTRANSFERASE INCREASED [None]
  - HAEMATOCRIT DECREASED [None]
  - HAEMOGLOBIN DECREASED [None]
  - LYMPHOCYTE PERCENTAGE DECREASED [None]
  - NEUTROPHIL PERCENTAGE INCREASED [None]
  - PUNCTURE SITE INFECTION [None]
